FAERS Safety Report 22525241 (Version 1)
Quarter: 2023Q2

REPORT INFORMATION
  Report Type: Spontaneous
  Country: RO (occurrence: RO)
  Receive Date: 20230606
  Receipt Date: 20230606
  Transmission Date: 20230721
  Serious: Yes (Hospitalization, Other)
  Sender: FDA-Public Use
  Company Number: RO-ASTELLAS-2023US016653

PATIENT
  Age: 78 Year
  Sex: Male

DRUGS (2)
  1. XTANDI [Suspect]
     Active Substance: ENZALUTAMIDE
     Indication: Prostate cancer
     Route: 065
     Dates: start: 202006
  2. XTANDI [Suspect]
     Active Substance: ENZALUTAMIDE
     Indication: Hormone-refractory prostate cancer
     Dosage: UNK UNK, UNKNOWN FREQ. (PROGRESSIVELY INCREASED DOSES FOR THE FIRST 2 WEEKS)
     Route: 065
     Dates: start: 202102

REACTIONS (6)
  - Posterior reversible encephalopathy syndrome [Unknown]
  - Neurological decompensation [Unknown]
  - Fall [Unknown]
  - Eastern Cooperative Oncology Group performance status worsened [Unknown]
  - COVID-19 [Unknown]
  - Encephalitis [Unknown]

NARRATIVE: CASE EVENT DATE: 20201201
